FAERS Safety Report 7925797-5 (Version None)
Quarter: 2011Q4

REPORT INFORMATION
  Report Type: 
  Country: None (occurrence: None)
  Receive Date: 20111118
  Receipt Date: 20110412
  Transmission Date: 20120403
  Serious: No
  Sender: FDA-Public Use
  Company Number: US-AMGEN-USASP2011016482

PATIENT
  Age: 55 Year
  Sex: Female

DRUGS (1)
  1. ENBREL [Suspect]
     Indication: RHEUMATOID ARTHRITIS
     Dosage: 50 MG, QWK
     Dates: start: 20110307

REACTIONS (16)
  - DECREASED APPETITE [None]
  - INJECTION SITE RASH [None]
  - INJECTION SITE REACTION [None]
  - FEELING ABNORMAL [None]
  - SOMNOLENCE [None]
  - FATIGUE [None]
  - INJECTION SITE HAEMATOMA [None]
  - INJECTION SITE HAEMORRHAGE [None]
  - INJECTION SITE SWELLING [None]
  - HERPES ZOSTER [None]
  - HYPOPNOEA [None]
  - MALAISE [None]
  - INJECTION SITE WARMTH [None]
  - NAUSEA [None]
  - INJECTION SITE ERYTHEMA [None]
  - INJECTION SITE PAIN [None]
